FAERS Safety Report 9602057 (Version 2)
Quarter: 2013Q4

REPORT INFORMATION
  Report Type: Spontaneous
  Country: US (occurrence: US)
  Receive Date: 20131007
  Receipt Date: 20131007
  Transmission Date: 20140711
  Serious: Yes (Other)
  Sender: FDA-Public Use
  Company Number: PHEH2013US017791

PATIENT
  Age: 53 Year
  Sex: Female

DRUGS (2)
  1. AFINITOR [Suspect]
     Indication: BREAST CANCER STAGE IV
     Dosage: 10 MG, DAILY
     Route: 048
     Dates: start: 201306
  2. EXEMESTANE [Concomitant]
     Indication: BREAST CANCER STAGE IV
     Dosage: 25 MG, QD
     Dates: start: 201306

REACTIONS (3)
  - Lymphadenopathy [Not Recovered/Not Resolved]
  - Local swelling [Not Recovered/Not Resolved]
  - Tongue spasm [Recovered/Resolved]
